FAERS Safety Report 12948576 (Version 2)
Quarter: 2016Q4

REPORT INFORMATION
  Report Type: Spontaneous
  Country: JP (occurrence: JP)
  Receive Date: 20161117
  Receipt Date: 20161125
  Transmission Date: 20170207
  Serious: Yes (Other)
  Sender: FDA-Public Use
  Company Number: JP-PFIZER INC-2016529253

PATIENT
  Age: 81 Year
  Sex: Female

DRUGS (6)
  1. CELECOX [Suspect]
     Active Substance: CELECOXIB
     Indication: POSTOPERATIVE ANALGESIA
     Dosage: 200 MG, 1X/DAY
     Route: 048
  2. URSO [Concomitant]
     Active Substance: URSODIOL
     Dosage: 300 MG, 1X/DAY
     Route: 048
  3. SENNOSIDE /00571901/ [Concomitant]
     Active Substance: SENNOSIDES A AND B
     Dosage: 24 MG, 1X/DAY
     Route: 048
  4. EDIROL [Concomitant]
     Active Substance: ELDECALCITOL
     Dosage: 0.75 MG, ONCE DAILY
     Route: 048
  5. BROTIZOLAM [Concomitant]
     Active Substance: BROTIZOLAM
     Dosage: 0.25 MG, ONCE DAILY
     Route: 048
  6. LANSOPRAZOLE. [Concomitant]
     Active Substance: LANSOPRAZOLE
     Dosage: 15 MG, 1X/DAY
     Route: 048

REACTIONS (3)
  - Blood immunoglobulin E increased [Not Recovered/Not Resolved]
  - Eosinophil count increased [Not Recovered/Not Resolved]
  - White blood cell count increased [Not Recovered/Not Resolved]

NARRATIVE: CASE EVENT DATE: 20161107
